FAERS Safety Report 6801473-7 (Version None)
Quarter: 2010Q2

REPORT INFORMATION
  Report Type: 
  Country: None (occurrence: None)
  Receive Date: 20100629
  Receipt Date: 20100622
  Transmission Date: 20101027
  Serious: Yes (Life-Threatening, Other)
  Sender: FDA-Public Use
  Company Number: JP-ABBOTT-10P-087-0642513-00

PATIENT
  Sex: Female
  Weight: 12.6 kg

DRUGS (15)
  1. SEVOFRANE [Suspect]
     Indication: GENERAL ANAESTHESIA
     Dosage: 2%
     Route: 055
     Dates: start: 20031105, end: 20031105
  2. NITROUS OXIDE [Concomitant]
     Indication: INDUCTION AND MAINTENANCE OF ANAESTHESIA
     Route: 055
     Dates: start: 20031105, end: 20031105
  3. OXYGEN [Concomitant]
     Indication: INDUCTION AND MAINTENANCE OF ANAESTHESIA
     Route: 055
     Dates: start: 20031105, end: 20031105
  4. DIURETIC AGENTS [Concomitant]
     Indication: DIURETIC THERAPY
  5. INOTROPIC AGENTS [Concomitant]
     Indication: DRUG THERAPY
  6. VASODEPRESSORS [Concomitant]
     Indication: VASOPRESSIVE THERAPY
  7. VECURONIUM BROMIDE [Concomitant]
     Indication: DRUG USE FOR UNKNOWN INDICATION
     Dates: start: 20031105, end: 20031105
  8. BETAMETHASONE [Concomitant]
     Indication: DRUG USE FOR UNKNOWN INDICATION
     Dates: start: 20031105, end: 20031105
  9. EPINEPHRINE [Concomitant]
     Indication: DRUG USE FOR UNKNOWN INDICATION
     Dates: start: 20031105, end: 20031105
  10. DOPAMINE HYDROCHLORIDE [Concomitant]
     Indication: DRUG USE FOR UNKNOWN INDICATION
     Dosage: 1-3 MICROGRAM/KG/MIN
     Dates: start: 20031105, end: 20031105
  11. ETILEFRINE HYDROCHLORIDE [Concomitant]
     Indication: DRUG USE FOR UNKNOWN INDICATION
     Dates: start: 20031105, end: 20031105
  12. HUMAM PLASMA PROTEIN FRACTION [Concomitant]
     Indication: DRUG USE FOR UNKNOWN INDICATION
     Dates: start: 20031105, end: 20031105
  13. ELECTROLYTE REHYDRATION [Concomitant]
     Indication: DRUG USE FOR UNKNOWN INDICATION
     Dates: start: 20031105, end: 20031105
  14. GLUCOSE/LACTATED RINGER'S SOLUTION [Concomitant]
     Indication: DRUG USE FOR UNKNOWN INDICATION
  15. FENTANYL CITRATE [Concomitant]
     Indication: DRUG USE FOR UNKNOWN INDICATION

REACTIONS (2)
  - ATRIOVENTRICULAR BLOCK COMPLETE [None]
  - CARDIOVASCULAR INSUFFICIENCY [None]
